FAERS Safety Report 8132318-3 (Version None)
Quarter: 2012Q1

REPORT INFORMATION
  Report Type: 
  Country: None (occurrence: None)
  Receive Date: 20120213
  Receipt Date: 20120206
  Transmission Date: 20120608
  Serious: Yes (Other)
  Sender: FDA-Public Use
  Company Number: US-PFIZER INC-2011243616

PATIENT
  Sex: Female

DRUGS (4)
  1. LYRICA [Suspect]
     Indication: FIBROMYALGIA
     Dosage: 75 MG, 2X/DAY
     Route: 048
     Dates: start: 20111001
  2. LYRICA [Interacting]
     Indication: MYALGIA
  3. NEURONTIN [Interacting]
     Dosage: 200 MG, 2X/DAY (200MG BID) OR (100MG, 2 CAPSULES TWICE DAILY)
     Dates: start: 20110720
  4. AMITRIPTYLINE [Concomitant]
     Dosage: 50 MG, UNK
     Dates: start: 20110922

REACTIONS (5)
  - DRUG INTERACTION [None]
  - FALL [None]
  - IMPAIRED DRIVING ABILITY [None]
  - FATIGUE [None]
  - SOMNOLENCE [None]
